FAERS Safety Report 8949428 (Version 1)
Quarter: 2012Q4

REPORT INFORMATION
  Report Type: 
  Country: US (occurrence: US)
  Receive Date: 20121206
  Receipt Date: 20121206
  Transmission Date: 20130627
  Serious: Yes (Other)
  Sender: FDA-Public Use
  Company Number: US-ELI_LILLY_AND_COMPANY-US201211008663

PATIENT
  Age: 37 Year
  Sex: Female

DRUGS (3)
  1. CYMBALTA [Suspect]
     Indication: DEPRESSION
     Dosage: 60 mg, qd
     Dates: start: 2010
  2. CYMBALTA [Suspect]
     Dosage: 30 mg, qd
  3. CYMBALTA [Suspect]
     Dosage: 30 mg, qd

REACTIONS (7)
  - Skin exfoliation [Not Recovered/Not Resolved]
  - Blister [Unknown]
  - Stomatitis [Unknown]
  - Rash [Unknown]
  - Somnolence [Unknown]
  - Eczema [Unknown]
  - Mental impairment [Unknown]
